FAERS Safety Report 4282977-0 (Version None)
Quarter: 2004Q1

REPORT INFORMATION
  Report Type: 
  Country: None (occurrence: None)
  Receive Date: 20040130
  Receipt Date: 20040121
  Transmission Date: 20041129
  Serious: Yes (Life-Threatening, Hospitalization)
  Sender: FDA-Public Use
  Company Number: PHEH2004US01080

PATIENT
  Age: 61 Year
  Sex: Female
  Weight: 63 kg

DRUGS (11)
  1. ZELNORM [Suspect]
     Indication: IRRITABLE BOWEL SYNDROME
     Dosage: UNK, UNK
     Route: 048
     Dates: start: 20030901, end: 20031214
  2. LANTUS [Concomitant]
  3. SEROQUEL [Concomitant]
     Dosage: 100 MG, QD
  4. ACTONEL [Concomitant]
  5. TAMOFEN [Concomitant]
     Indication: BREAST CANCER
  6. SYNTHROID [Concomitant]
     Indication: HYPOTHYROIDISM
  7. MULTIVITAMIN [Concomitant]
  8. ACETYLSALICYLIC ACID SRT [Concomitant]
     Dosage: 81 MG, QD
  9. PROCRIT [Concomitant]
  10. IRON SULFATETHIAMIN COMPOUND TAB [Concomitant]
  11. VITAMIN B-12 [Concomitant]

REACTIONS (10)
  - ABDOMINAL ADHESIONS [None]
  - ABDOMINAL COMPARTMENT SYNDROME [None]
  - CONSTIPATION [None]
  - FLATULENCE [None]
  - INTESTINAL ISCHAEMIA [None]
  - NAUSEA [None]
  - PERITONEAL ABSCESS [None]
  - PNEUMATOSIS CYSTOIDES INTESTINALIS [None]
  - POST PROCEDURAL COMPLICATION [None]
  - VOMITING [None]
